FAERS Safety Report 7305714-1 (Version None)
Quarter: 2011Q1

REPORT INFORMATION
  Report Type: 
  Country: None (occurrence: None)
  Receive Date: 20110222
  Receipt Date: 20110216
  Transmission Date: 20110831
  Serious: Yes (Hospitalization)
  Sender: FDA-Public Use
  Company Number: A0914472A

PATIENT
  Age: 57 Year
  Sex: Female

DRUGS (2)
  1. CAPECITABINE [Suspect]
     Dosage: 2GM2 CYCLIC
     Route: 065
     Dates: start: 20100601, end: 20100801
  2. TYKERB [Suspect]
     Dosage: 1250MG PER DAY
     Route: 065
     Dates: start: 20100601

REACTIONS (6)
  - CEREBELLAR SYNDROME [None]
  - SOMNOLENCE [None]
  - DIZZINESS [None]
  - VOMITING [None]
  - ATAXIA [None]
  - NEUROTOXICITY [None]
